FAERS Safety Report 5248367-9 (Version None)
Quarter: 2007Q1

REPORT INFORMATION
  Report Type: 
  Country: None (occurrence: None)
  Receive Date: 20070227
  Receipt Date: 20070213
  Transmission Date: 20070707
  Serious: Yes (Hospitalization)
  Sender: FDA-Public Use
  Company Number: US-SHR-US-2007-005215

PATIENT
  Age: 39 Year
  Sex: Female

DRUGS (1)
  1. BETASERON [Suspect]
     Dosage: .8 ML, EVERY 2D
     Route: 058
     Dates: start: 20030224

REACTIONS (4)
  - HYSTERECTOMY [None]
  - OOPHORECTOMY BILATERAL [None]
  - RENAL STONE REMOVAL [None]
  - STENT REMOVAL [None]
